FAERS Safety Report 8982663 (Version 1)
Quarter: 2012Q4

REPORT INFORMATION
  Report Type: Report from Study
  Country: US (occurrence: US)
  Receive Date: 20121224
  Receipt Date: 20121224
  Transmission Date: 20130627
  Serious: Yes (Other)
  Sender: FDA-Public Use
  Company Number: US-ROCHE-1173781

PATIENT
  Age: 61 Year
  Sex: Female
  Weight: 98.06 kg

DRUGS (19)
  1. CAPECITABINE [Suspect]
     Indication: BREAST CANCER METASTATIC
     Route: 048
     Dates: start: 20111218, end: 20120526
  2. LEXAPRO [Concomitant]
     Route: 065
  3. ZANTAC [Concomitant]
  4. LIPITOR [Concomitant]
     Route: 065
  5. XYZAL [Concomitant]
     Route: 065
  6. SINGULAIR [Concomitant]
     Route: 065
  7. IMITREX [Concomitant]
     Route: 065
  8. AMBIEN CR [Concomitant]
     Route: 065
  9. DIAZEPAM [Concomitant]
     Route: 065
  10. OXYCONTIN [Concomitant]
     Route: 065
  11. OXYCODONE [Concomitant]
     Route: 065
  12. DULCOLAX (BISACODYL) [Concomitant]
     Route: 065
  13. ONDANSETRON [Concomitant]
     Route: 065
  14. CALCIUM [Concomitant]
     Route: 065
  15. VITAMIN B6 [Concomitant]
     Route: 065
  16. VITAMIN B COMPLEX [Concomitant]
     Route: 065
  17. VITAMIN D3 [Concomitant]
     Route: 065
  18. MAGNESIUM [Concomitant]
     Route: 065
  19. POTASSIUM [Concomitant]
     Route: 065

REACTIONS (7)
  - Malignant neoplasm progression [Unknown]
  - Skin burning sensation [Unknown]
  - Palmar-plantar erythrodysaesthesia syndrome [Recovering/Resolving]
  - White blood cell count decreased [Unknown]
  - Red blood cell count decreased [Unknown]
  - Paraesthesia [Not Recovered/Not Resolved]
  - Joint swelling [Not Recovered/Not Resolved]
